FAERS Safety Report 10760645 (Version 1)
Quarter: 2015Q1

REPORT INFORMATION
  Report Type: Spontaneous
  Country: US (occurrence: US)
  Receive Date: 20150204
  Receipt Date: 20150204
  Transmission Date: 20150721
  Serious: Yes (Other)
  Sender: FDA-Public Use
  Company Number: US-AMGEN-USASP2015008627

PATIENT
  Age: 81 Year
  Sex: Female

DRUGS (4)
  1. RITUXAN [Concomitant]
     Active Substance: RITUXIMAB
     Indication: NON-HODGKIN^S LYMPHOMA
     Dosage: UNK, OVER 21 DAYS
  2. NEULASTA [Suspect]
     Active Substance: PEGFILGRASTIM
     Indication: WHITE BLOOD CELL COUNT DECREASED
     Dosage: UNK
     Route: 065
  3. LUCRIN [Concomitant]
     Active Substance: LEUPROLIDE ACETATE
     Indication: NON-HODGKIN^S LYMPHOMA
     Dosage: UNK
  4. BENDAMUSTINE [Concomitant]
     Active Substance: BENDAMUSTINE
     Indication: NON-HODGKIN^S LYMPHOMA
     Dosage: UNK, OVER 21 DAYS

REACTIONS (11)
  - White blood cell count decreased [Unknown]
  - Coronary artery bypass [Unknown]
  - Diarrhoea [Unknown]
  - Off label use [Unknown]
  - Fall [Unknown]
  - Malaise [Unknown]
  - Pain [Unknown]
  - Drug hypersensitivity [Unknown]
  - Muscular weakness [Unknown]
  - Dehydration [Unknown]
  - Back pain [Unknown]

NARRATIVE: CASE EVENT DATE: 2014
